FAERS Safety Report 9938286 (Version 2)
Quarter: 2014Q1

REPORT INFORMATION
  Report Type: Report from Study
  Country: US (occurrence: US)
  Receive Date: 20140303
  Receipt Date: 20140303
  Transmission Date: 20141002
  Serious: No
  Sender: FDA-Public Use
  Company Number: US-ABBVIE-12P-163-0978158-00

PATIENT
  Age: 77 Year
  Sex: Female

DRUGS (13)
  1. HUMIRA [Suspect]
     Indication: CROHN^S DISEASE
     Route: 058
     Dates: start: 20120811, end: 20120811
  2. HUMIRA [Suspect]
     Dates: start: 20120824, end: 20120824
  3. HUMIRA [Suspect]
     Dates: start: 20120907
  4. HUMIRA [Suspect]
  5. PREDNISONE [Suspect]
     Indication: CROHN^S DISEASE
     Dosage: 3 TABLETS DAILY
  6. DIOVAN [Concomitant]
     Indication: BLOOD PRESSURE
     Dosage: 120MG DAILY
     Route: 048
  7. CRESTOR [Concomitant]
     Indication: BLOOD CHOLESTEROL
     Dosage: 20MG DAILY
     Route: 048
  8. LEXAPRO [Concomitant]
     Indication: ANXIETY
     Dosage: 20MG DAILY
     Route: 048
  9. ALEVE [Concomitant]
     Indication: PAIN
  10. AMBIEN [Concomitant]
     Indication: INSOMNIA
     Route: 048
  11. EYE VITAMINS [Concomitant]
     Indication: MACULAR DEGENERATION
  12. LIVE ENZYME IN PROBIOTICS [Concomitant]
     Indication: PRODUCT USED FOR UNKNOWN INDICATION
  13. ASACOL [Concomitant]
     Indication: CROHN^S DISEASE

REACTIONS (21)
  - Asthenia [Not Recovered/Not Resolved]
  - Fatigue [Not Recovered/Not Resolved]
  - Tremor [Not Recovered/Not Resolved]
  - Decreased appetite [Not Recovered/Not Resolved]
  - Rectal haemorrhage [Not Recovered/Not Resolved]
  - Mucous stools [Not Recovered/Not Resolved]
  - Weight decreased [Not Recovered/Not Resolved]
  - Retching [Unknown]
  - Vomiting [Unknown]
  - Vision blurred [Unknown]
  - Injection site pain [Unknown]
  - Crohn^s disease [Unknown]
  - Psychomotor hyperactivity [Unknown]
  - Visual acuity reduced [Not Recovered/Not Resolved]
  - Increased tendency to bruise [Not Recovered/Not Resolved]
  - Rash [Not Recovered/Not Resolved]
  - Tremor [Not Recovered/Not Resolved]
  - Tremor [Not Recovered/Not Resolved]
  - Dizziness [Not Recovered/Not Resolved]
  - Gait disturbance [Not Recovered/Not Resolved]
  - Anxiety [Not Recovered/Not Resolved]
